FAERS Safety Report 26206371 (Version 1)
Quarter: 2025Q4

REPORT INFORMATION
  Report Type: Spontaneous
  Country: US (occurrence: US)
  Receive Date: 20251229
  Receipt Date: 20251229
  Transmission Date: 20260118
  Serious: Yes (Hospitalization, Other)
  Sender: IPCA
  Company Number: US-IPCA LABORATORIES LIMITED-IPC-2025-US-003651

PATIENT

DRUGS (10)
  1. AMITRIPTYLINE [Suspect]
     Active Substance: AMITRIPTYLINE
     Indication: Depression
     Dosage: UNK
     Route: 065
  2. ACETAMINOPHEN [Suspect]
     Active Substance: ACETAMINOPHEN
     Indication: Sepsis
     Dosage: UNK
     Route: 065
  3. ACETAMINOPHEN [Suspect]
     Active Substance: ACETAMINOPHEN
     Indication: Pyrexia
  4. METOPROLOL [Suspect]
     Active Substance: METOPROLOL
     Indication: Tachycardia
     Dosage: UNK
     Route: 065
  5. METOPROLOL [Suspect]
     Active Substance: METOPROLOL
     Indication: Tachypnoea
  6. DULOXETINE [Suspect]
     Active Substance: DULOXETINE
     Indication: Depression
     Dosage: UNK
     Route: 065
  7. MEROPENEM [Concomitant]
     Active Substance: MEROPENEM
     Indication: Sepsis
     Dosage: UNK
     Route: 065
  8. CEFEPIME [Concomitant]
     Active Substance: CEFEPIME HYDROCHLORIDE
     Indication: Sepsis
     Dosage: UNK
     Route: 065
  9. VANCOMYCIN [Concomitant]
     Active Substance: VANCOMYCIN
     Indication: Sepsis
     Dosage: UNK
     Route: 065
  10. METRONIDAZOLE [Concomitant]
     Active Substance: METRONIDAZOLE
     Indication: Sepsis
     Dosage: UNK
     Route: 065

REACTIONS (3)
  - Systemic inflammatory response syndrome [Recovering/Resolving]
  - Hyperthermia [Recovering/Resolving]
  - Therapy non-responder [Unknown]
